FAERS Safety Report 5283596-X (Version None)
Quarter: 2007Q2

REPORT INFORMATION
  Report Type: 
  Country: None (occurrence: None)
  Receive Date: 20070402
  Receipt Date: 20070323
  Transmission Date: 20071010
  Serious: Yes (Hospitalization)
  Sender: FDA-Public Use
  Company Number: FR-ROCHE-489183

PATIENT
  Age: 79 Year
  Sex: Female
  Weight: 78 kg

DRUGS (6)
  1. LOXEN LP [Suspect]
     Indication: DRUG USE FOR UNKNOWN INDICATION
     Route: 048
     Dates: end: 20070129
  2. DIGITALINE NATIVELLE [Concomitant]
  3. TRANXENE [Concomitant]
  4. LOVENOX [Concomitant]
  5. KEPPRA [Concomitant]
  6. ESCITALOPRAM [Concomitant]

REACTIONS (1)
  - HEPATITIS [None]
